FAERS Safety Report 14624322 (Version 1)
Quarter: 2018Q1

REPORT INFORMATION
  Report Type: Spontaneous
  Country: US (occurrence: US)
  Receive Date: 20180309
  Receipt Date: 20180309
  Transmission Date: 20180509
  Serious: Yes (Hospitalization)
  Sender: FDA-Public Use
  Company Number: None

PATIENT
  Age: 81 Year
  Sex: Male
  Weight: 86.4 kg

DRUGS (7)
  1. ASPARIN [Concomitant]
  2. UROCIT-K [Suspect]
     Active Substance: POTASSIUM CITRATE
     Indication: NEPHROLITHIASIS
     Dosage: ?          QUANTITY:2 TABLET(S);?
     Route: 048
  3. MULTIVITAMIN [Concomitant]
     Active Substance: VITAMINS
  4. MEN^S MULTIVITAMIN [Concomitant]
  5. FLOMAX [Concomitant]
     Active Substance: TAMSULOSIN HYDROCHLORIDE
  6. DITIAZEM ER [Concomitant]
     Active Substance: DILTIAZEM
  7. PROAIR HFA/ACTUATION (ALBUTEROL SULFATE) [Concomitant]

REACTIONS (9)
  - Oropharyngeal pain [None]
  - Wheezing [None]
  - Dyspnoea [None]
  - Respiratory tract congestion [None]
  - Cough [None]
  - Product physical issue [None]
  - Poor quality drug administered [None]
  - Chest discomfort [None]
  - Suspected product tampering [None]

NARRATIVE: CASE EVENT DATE: 20180306
